FAERS Safety Report 18808791 (Version 1)
Quarter: 2021Q1

REPORT INFORMATION
  Report Type: Spontaneous
  Country: CA (occurrence: CA)
  Receive Date: 20210129
  Receipt Date: 20210129
  Transmission Date: 20210419
  Serious: Yes (Other)
  Sender: FDA-Public Use
  Company Number: CA-GLAXOSMITHKLINE-CA2021GSK020440

PATIENT
  Sex: Male

DRUGS (1)
  1. AVANDIA [Suspect]
     Active Substance: ROSIGLITAZONE MALEATE
     Indication: DIABETES MELLITUS
     Dosage: 4 MG, QD
     Route: 048
     Dates: start: 20020415, end: 20071218

REACTIONS (7)
  - Coronary arterial stent insertion [Unknown]
  - Coronary angioplasty [Unknown]
  - Chest pain [Unknown]
  - Arteriosclerosis coronary artery [Unknown]
  - Coronary artery restenosis [Unknown]
  - Myocardial infarction [Unknown]
  - Cardiac disorder [Unknown]
